FAERS Safety Report 10735786 (Version 1)
Quarter: 2015Q1

REPORT INFORMATION
  Report Type: Spontaneous
  Country: US (occurrence: US)
  Receive Date: 20150126
  Receipt Date: 20150126
  Transmission Date: 20150721
  Serious: No
  Sender: FDA-Public Use
  Company Number: US-ASTRAZENECA-2015SE04543

PATIENT
  Sex: Male

DRUGS (1)
  1. SYMBICORT [Suspect]
     Active Substance: BUDESONIDE\FORMOTEROL FUMARATE DIHYDRATE
     Route: 055
     Dates: start: 201412

REACTIONS (6)
  - Ear infection [Unknown]
  - Nasopharyngitis [Unknown]
  - Productive cough [Unknown]
  - Chronic respiratory disease [Unknown]
  - Inflammation [Unknown]
  - Oropharyngeal pain [Unknown]
